FAERS Safety Report 4469638-X (Version None)
Quarter: 2004Q3

REPORT INFORMATION
  Report Type: 
  Country: None (occurrence: None)
  Receive Date: 20040920
  Receipt Date: 20040614
  Transmission Date: 20050211
  Serious: Yes (Other)
  Sender: FDA-Public Use
  Company Number: PHEH2004US06499

PATIENT
  Age: 49 Year
  Sex: Female

DRUGS (2)
  1. ZOMETA [Suspect]
     Indication: BREAST CANCER METASTATIC
     Dosage: 4 MG, INTRAVENOUS
     Route: 042
     Dates: start: 20040524
  2. ARIMIDEX [Concomitant]

REACTIONS (3)
  - PYREXIA [None]
  - TREMOR [None]
  - VOMITING [None]
